FAERS Safety Report 5904273-5 (Version None)
Quarter: 2008Q3

REPORT INFORMATION
  Report Type: 
  Country: None (occurrence: None)
  Receive Date: 20080930
  Receipt Date: 20080930
  Transmission Date: 20090109
  Serious: Yes (Life-Threatening, Hospitalization)
  Sender: FDA-Public Use
  Company Number: None

PATIENT
  Age: 19 Year
  Sex: Female
  Weight: 54.4316 kg

DRUGS (1)
  1. SULFAMETHOXAZOLE AND TRIMETHOPRIM [Suspect]
     Indication: CYSTITIS
     Dosage: 1 TAB Q6HR PO
     Route: 048

REACTIONS (12)
  - ANOREXIA [None]
  - BLOOD PRESSURE INCREASED [None]
  - CHILLS [None]
  - FLANK PAIN [None]
  - LETHARGY [None]
  - NAUSEA [None]
  - PALLOR [None]
  - PULSE ABNORMAL [None]
  - PYREXIA [None]
  - RENAL FAILURE ACUTE [None]
  - VOMITING [None]
  - WEIGHT DECREASED [None]
